FAERS Safety Report 13770842 (Version 1)
Quarter: 2017Q3

REPORT INFORMATION
  Report Type: Spontaneous
  Country: US (occurrence: US)
  Receive Date: 20170720
  Receipt Date: 20170720
  Transmission Date: 20171127
  Serious: Yes (Hospitalization)
  Sender: FDA-Public Use
  Company Number: None

PATIENT
  Age: 69 Year
  Sex: Female

DRUGS (10)
  1. ANASTROZOLE. [Concomitant]
     Active Substance: ANASTROZOLE
  2. ADVAIR DISKU AER [Concomitant]
  3. ENOXAPARIN [Concomitant]
     Active Substance: ENOXAPARIN
  4. VENTOLIN HFA AER [Concomitant]
  5. RISPERIDONE. [Concomitant]
     Active Substance: RISPERIDONE
  6. PANTOPRAZOLE [Concomitant]
     Active Substance: PANTOPRAZOLE
  7. KISQALI [Suspect]
     Active Substance: RIBOCICLIB
     Indication: BREAST CANCER
     Route: 048
     Dates: start: 20170601
  8. MORPHINE SUL [Concomitant]
     Active Substance: MORPHINE SULFATE
  9. GABAPENTIN. [Concomitant]
     Active Substance: GABAPENTIN
  10. LEVOTHYROXIN [Concomitant]
     Active Substance: LEVOTHYROXINE

REACTIONS (6)
  - Nausea [None]
  - Lung neoplasm [None]
  - Dyspnoea [None]
  - Pulmonary oedema [None]
  - Thrombosis [None]
  - Heart rate increased [None]

NARRATIVE: CASE EVENT DATE: 20170629
